FAERS Safety Report 6359128-1 (Version None)
Quarter: 2009Q3

REPORT INFORMATION
  Report Type: 
  Country: None (occurrence: None)
  Receive Date: 20090917
  Receipt Date: 20090914
  Transmission Date: 20100115
  Serious: Yes (Hospitalization)
  Sender: FDA-Public Use
  Company Number: US-TEVA-158358USA

PATIENT
  Sex: Male
  Weight: 93.4 kg

DRUGS (18)
  1. FLUOROURACIL [Suspect]
     Indication: COLON CANCER
     Dosage: BOLUS 820 MG DAY 1-3; INTERVAL EVERY 2 WEEKS
     Route: 042
     Dates: start: 20061108, end: 20070103
  2. FOLINIC ACID [Suspect]
     Indication: COLON CANCER
     Dosage: 820 MG DAY 1-3 INTERVAL EVERY 2 WEEKS
     Route: 042
     Dates: start: 20061108
  3. OXALIPLATIN [Suspect]
     Indication: COLON CANCER
     Dosage: 170 MG DAY 1-3 INTERVAL EVERY 2 WEEKS
     Route: 042
     Dates: start: 20061108
  4. AG-013, 736 [Suspect]
     Indication: COLON CANCER
     Route: 048
     Dates: start: 20061110, end: 20070307
  5. BEVACIZUMAB [Suspect]
     Indication: COLON CANCER
     Dosage: 200 MG DAY 1 EVERY 2 WEEKS
     Route: 042
     Dates: start: 20061108, end: 20070321
  6. METFORMIN HCL [Concomitant]
     Route: 048
     Dates: start: 20060718
  7. DYAZIDE [Concomitant]
     Dosage: 1 TAB/DAY
     Route: 048
     Dates: start: 20060718, end: 20061212
  8. PROCHLORPERAZINE EDISYLATE [Concomitant]
     Route: 048
     Dates: start: 20061110, end: 20070301
  9. TEMAZEPAM [Concomitant]
     Route: 048
     Dates: start: 20061203, end: 20070201
  10. SENNA ALEXANDRINA [Concomitant]
     Route: 048
     Dates: start: 20061110, end: 20070126
  11. VICODIN [Concomitant]
     Route: 048
     Dates: start: 20061114, end: 20070126
  12. LISINOPRIL [Concomitant]
     Route: 048
     Dates: start: 20061220, end: 20070103
  13. EPOGEN [Concomitant]
     Dosage: 40 K AS NEEDED
     Route: 058
     Dates: start: 20061115
  14. DIPHENHYDRAMINE HYDROCHLORIDE [Concomitant]
     Route: 042
     Dates: start: 20061108
  15. DOLASETRON MESILATE [Concomitant]
     Route: 042
     Dates: start: 20061108
  16. DEXAMETHASONE SODIUM PHOSPHATE [Concomitant]
     Route: 042
     Dates: start: 20061108
  17. CALCIUM GLUCONATE [Concomitant]
     Route: 042
     Dates: start: 20061108
  18. MAGNESIUM SULFATE [Concomitant]
     Route: 042
     Dates: start: 20061108

REACTIONS (1)
  - ABDOMINAL PAIN [None]
